FAERS Safety Report 13522846 (Version 1)
Quarter: 2017Q2

REPORT INFORMATION
  Report Type: Spontaneous
  Country: TR (occurrence: TR)
  Receive Date: 20170508
  Receipt Date: 20170508
  Transmission Date: 20170830
  Serious: Yes (Death)
  Sender: FDA-Public Use
  Company Number: TR-PFIZER INC-2017195936

PATIENT
  Age: 38 Year
  Sex: Male

DRUGS (1)
  1. INLYTA [Suspect]
     Active Substance: AXITINIB
     Indication: METASTATIC RENAL CELL CARCINOMA
     Dosage: UNK

REACTIONS (5)
  - Diarrhoea [Unknown]
  - Fatigue [Unknown]
  - Death [Fatal]
  - Palpitations [Unknown]
  - Neoplasm progression [Unknown]
